FAERS Safety Report 7873916-1 (Version None)
Quarter: 2011Q3

REPORT INFORMATION
  Report Type: 
  Country: None (occurrence: None)
  Receive Date: 20110927
  Receipt Date: 20100827
  Transmission Date: 20111222
  Serious: Yes (Other)
  Sender: FDA-Public Use
  Company Number: WAES 1008USA03879

PATIENT
  Sex: Female

DRUGS (4)
  1. LIPITOR [Suspect]
  2. CRESTOR [Suspect]
  3. ZOCOR [Suspect]
     Dosage: PO
     Route: 048
  4. VYTORIN [Suspect]
     Dosage: PO
     Route: 048

REACTIONS (3)
  - MYALGIA [None]
  - HEPATIC ENZYME INCREASED [None]
  - MUSCLE SPASMS [None]
